FAERS Safety Report 11325735 (Version 2)
Quarter: 2015Q3

REPORT INFORMATION
  Report Type: Report from Study
  Country: GR (occurrence: GR)
  Receive Date: 20150731
  Receipt Date: 20150924
  Transmission Date: 20151125
  Serious: Yes (Hospitalization, Disabling)
  Sender: FDA-Public Use
  Company Number: GR-AMGEN-GRCNI2015075519

PATIENT
  Age: 72 Year
  Sex: Female

DRUGS (9)
  1. IRINOTECAN [Suspect]
     Active Substance: IRINOTECAN
     Indication: PRODUCT USED FOR UNKNOWN INDICATION
     Dosage: 180 MG/M2, Q2WK
     Route: 042
     Dates: start: 201505
  2. 5-FU                               /00098801/ [Suspect]
     Active Substance: FLUOROURACIL
     Indication: PRODUCT USED FOR UNKNOWN INDICATION
     Dosage: 400 MG/M2, Q2WK
     Route: 042
     Dates: start: 201505
  3. GRANISETRON [Concomitant]
     Active Substance: GRANISETRON
     Dosage: 1 MG, UNK
     Route: 042
     Dates: start: 201505
  4. LEUCOVORIN                         /00566701/ [Concomitant]
     Active Substance: LEUCOVORIN
     Dosage: 250 MG/M2, Q2WK
     Route: 042
     Dates: start: 201505
  5. PEGFILGRASTIM [Concomitant]
     Active Substance: PEGFILGRASTIM
     Dosage: 6 MG, QD
     Route: 058
     Dates: start: 201505
  6. 5-FU                               /00098801/ [Suspect]
     Active Substance: FLUOROURACIL
     Dosage: 1200 MG/M2, Q2WK
     Route: 042
  7. PANITUMUMAB [Suspect]
     Active Substance: PANITUMUMAB
     Indication: COLORECTAL CANCER METASTATIC
     Dosage: 6 MG/KG, Q2WK
     Route: 042
     Dates: start: 20150504
  8. RANITIDINE [Concomitant]
     Active Substance: RANITIDINE\RANITIDINE HYDROCHLORIDE
     Dosage: 150 MG, UNK
     Route: 042
     Dates: start: 201505
  9. DEXAMETHASONE. [Concomitant]
     Active Substance: DEXAMETHASONE
     Dosage: 8 MG, UNK
     Route: 042
     Dates: start: 201505

REACTIONS (8)
  - Constipation [Recovered/Resolved]
  - Neutropenia [Recovered/Resolved]
  - Thrombocytopenia [Recovered/Resolved]
  - Dermatitis [Recovered/Resolved]
  - Decreased appetite [Not Recovered/Not Resolved]
  - Stomatitis [Recovering/Resolving]
  - Tremor [Recovered/Resolved]
  - Diarrhoea [Recovered/Resolved]

NARRATIVE: CASE EVENT DATE: 20150521
